FAERS Safety Report 16481534 (Version 2)
Quarter: 2019Q3

REPORT INFORMATION
  Report Type: Spontaneous
  Country: US (occurrence: US)
  Receive Date: 20190627
  Receipt Date: 20190801
  Transmission Date: 20191004
  Serious: Yes (Other)
  Sender: FDA-Public Use
  Company Number: US-CELLTRION INC.-2019US022046

PATIENT

DRUGS (1)
  1. INFLECTRA [Suspect]
     Active Substance: INFLIXIMAB-DYYB
     Indication: PSORIATIC ARTHROPATHY
     Dosage: UNK AT 0,2,6 THEN EVERY 6 WEEKS
     Route: 065

REACTIONS (5)
  - Product use issue [Unknown]
  - Weight decreased [Unknown]
  - Abdominal pain [Unknown]
  - Thrombocytopenic purpura [Unknown]
  - Abdominal distension [Unknown]
